FAERS Safety Report 16463081 (Version 1)
Quarter: 2019Q2

REPORT INFORMATION
  Report Type: Spontaneous
  Country: US (occurrence: US)
  Receive Date: 20190513
  Receipt Date: 20190513
  Transmission Date: 20190711
  Serious: No
  Sender: FDA-Public Use
  Company Number: None

PATIENT
  Age: 84 Year
  Sex: Female
  Weight: 73.03 kg

DRUGS (1)
  1. SIMPONI ARIA [Suspect]
     Active Substance: GOLIMUMAB
     Indication: RHEUMATOID ARTHRITIS
     Dosage: ?          OTHER DOSE:|NFUSE139.8MG|NTRTHEN EVERY 8 WEEK:;?
     Route: 042
     Dates: start: 201804

REACTIONS (3)
  - Cystitis [None]
  - Joint swelling [None]
  - Cough [None]
